FAERS Safety Report 24394662 (Version 7)
Quarter: 2025Q1

REPORT INFORMATION
  Report Type: Report from Study
  Country: CN (occurrence: CN)
  Receive Date: 20241004
  Receipt Date: 20250122
  Transmission Date: 20250408
  Serious: Yes (Hospitalization, Other)
  Sender: ROCHE
  Company Number: CN-ROCHE-10000093516

PATIENT
  Sex: Male
  Weight: 75 kg

DRUGS (80)
  1. POLATUZUMAB VEDOTIN [Suspect]
     Active Substance: POLATUZUMAB VEDOTIN
     Indication: Diffuse large B-cell lymphoma
     Route: 042
     Dates: start: 20240808, end: 20240808
  2. POLATUZUMAB VEDOTIN [Suspect]
     Active Substance: POLATUZUMAB VEDOTIN
     Route: 042
     Dates: start: 20240627
  3. POLATUZUMAB VEDOTIN [Suspect]
     Active Substance: POLATUZUMAB VEDOTIN
     Route: 042
     Dates: start: 20240830, end: 20240830
  4. POLATUZUMAB VEDOTIN [Suspect]
     Active Substance: POLATUZUMAB VEDOTIN
     Route: 042
     Dates: start: 20241010, end: 20241010
  5. ZUBERITAMAB [Suspect]
     Active Substance: ZUBERITAMAB
     Indication: Diffuse large B-cell lymphoma
     Dosage: SUBSEQUENT DOSE ON 10-OCT-2024
     Route: 042
     Dates: start: 20240808, end: 20240808
  6. ZUBERITAMAB [Suspect]
     Active Substance: ZUBERITAMAB
     Route: 042
     Dates: start: 20240831, end: 20240831
  7. ZUBERITAMAB [Suspect]
     Active Substance: ZUBERITAMAB
     Route: 042
     Dates: start: 20241010, end: 20241010
  8. CYCLOPHOSPHAMIDE [Suspect]
     Active Substance: CYCLOPHOSPHAMIDE
     Indication: Diffuse large B-cell lymphoma
     Route: 042
     Dates: start: 20240809, end: 20240809
  9. CYCLOPHOSPHAMIDE [Suspect]
     Active Substance: CYCLOPHOSPHAMIDE
     Route: 042
     Dates: start: 20240901, end: 20240901
  10. CYCLOPHOSPHAMIDE [Suspect]
     Active Substance: CYCLOPHOSPHAMIDE
     Route: 042
     Dates: start: 20241011, end: 20241011
  11. DIETARY SUPPLEMENT [Suspect]
     Active Substance: DIETARY SUPPLEMENT
     Indication: Diffuse large B-cell lymphoma
     Dosage: SUBSEQUENT DOSE ON 13-SEP-2024 AND END DATE 23-SEP-2024
     Route: 048
     Dates: start: 20240913, end: 20240923
  12. DOXORUBICIN HYDROCHLORIDE [Suspect]
     Active Substance: DOXORUBICIN HYDROCHLORIDE
     Indication: Diffuse large B-cell lymphoma
     Dosage: THERAPY START DATE AND END DATE 09-AUG-2024?SUBSEQUENT DOSE ON 11-OCT-2024
     Route: 042
     Dates: start: 20240809, end: 20240809
  13. DOXORUBICIN HYDROCHLORIDE [Suspect]
     Active Substance: DOXORUBICIN HYDROCHLORIDE
     Route: 042
     Dates: start: 20240901, end: 20240903
  14. DOXORUBICIN HYDROCHLORIDE [Suspect]
     Active Substance: DOXORUBICIN HYDROCHLORIDE
     Route: 042
     Dates: start: 20241011, end: 20241013
  15. GENTAMICIN SULFATE [Suspect]
     Active Substance: GENTAMICIN SULFATE
     Indication: Diffuse large B-cell lymphoma
     Dosage: DOSE: 80000 U
     Route: 048
     Dates: start: 20240912, end: 20240915
  16. CASPOFUNGIN ACETATE [Suspect]
     Active Substance: CASPOFUNGIN ACETATE
     Indication: Diffuse large B-cell lymphoma
     Route: 042
     Dates: start: 20240915, end: 20240919
  17. CASPOFUNGIN ACETATE [Suspect]
     Active Substance: CASPOFUNGIN ACETATE
     Dosage: SUBSEQUENT DOSE ON 07-NOV-2024
     Route: 042
     Dates: start: 20240919, end: 20240923
  18. MOXIFLOXACIN HYDROCHLORIDE [Suspect]
     Active Substance: MOXIFLOXACIN HYDROCHLORIDE
     Indication: Diffuse large B-cell lymphoma
     Dosage: SUBSEQUENT DOSE ON 19-SEP-2024
     Route: 042
     Dates: start: 20240915, end: 20240923
  19. PROBIOTICS NOS [Suspect]
     Active Substance: PROBIOTICS NOS
     Indication: Diffuse large B-cell lymphoma
     Route: 065
  20. DEXAMETHASONE SODIUM PHOSPHATE [Suspect]
     Active Substance: DEXAMETHASONE SODIUM PHOSPHATE
     Indication: Product used for unknown indication
     Route: 042
     Dates: start: 20240808, end: 20240808
  21. DEXAMETHASONE SODIUM PHOSPHATE [Suspect]
     Active Substance: DEXAMETHASONE SODIUM PHOSPHATE
     Route: 042
     Dates: start: 20240901, end: 20240905
  22. DEXAMETHASONE SODIUM PHOSPHATE [Suspect]
     Active Substance: DEXAMETHASONE SODIUM PHOSPHATE
     Route: 030
     Dates: start: 20240830, end: 20240830
  23. DEXAMETHASONE SODIUM PHOSPHATE [Suspect]
     Active Substance: DEXAMETHASONE SODIUM PHOSPHATE
     Route: 042
     Dates: start: 20240831, end: 20240831
  24. DEXAMETHASONE SODIUM PHOSPHATE [Suspect]
     Active Substance: DEXAMETHASONE SODIUM PHOSPHATE
     Route: 042
     Dates: start: 20240809, end: 20240813
  25. DEXAMETHASONE SODIUM PHOSPHATE [Suspect]
     Active Substance: DEXAMETHASONE SODIUM PHOSPHATE
     Route: 042
     Dates: start: 20241011, end: 20241015
  26. DEXAMETHASONE SODIUM PHOSPHATE [Suspect]
     Active Substance: DEXAMETHASONE SODIUM PHOSPHATE
     Route: 042
     Dates: start: 20241010, end: 20241010
  27. DEXAMETHASONE SODIUM PHOSPHATE [Suspect]
     Active Substance: DEXAMETHASONE SODIUM PHOSPHATE
     Route: 042
     Dates: start: 20240913, end: 20240913
  28. CEFOPERAZONE SODIUM\SULBACTAM SODIUM [Concomitant]
     Active Substance: CEFOPERAZONE SODIUM\SULBACTAM SODIUM
     Indication: Diffuse large B-cell lymphoma
     Dosage: FREQUENCY: ONCE
     Route: 042
     Dates: start: 20240911, end: 20240911
  29. CEFOPERAZONE SODIUM\SULBACTAM SODIUM [Concomitant]
     Active Substance: CEFOPERAZONE SODIUM\SULBACTAM SODIUM
     Route: 042
     Dates: start: 20241030, end: 20241030
  30. CEFOPERAZONE SODIUM\SULBACTAM SODIUM [Concomitant]
     Active Substance: CEFOPERAZONE SODIUM\SULBACTAM SODIUM
     Route: 042
     Dates: start: 20241107, end: 20241119
  31. Pegylated recombinant human granulocyte stimulating factor injection [Concomitant]
     Indication: Prophylaxis
     Route: 058
     Dates: start: 20240813, end: 20240813
  32. Pegylated recombinant human granulocyte stimulating factor injection [Concomitant]
     Route: 058
     Dates: start: 20241015, end: 20241015
  33. HUMAN IMMUNOGLOBULIN G [Concomitant]
     Active Substance: HUMAN IMMUNOGLOBULIN G
     Route: 042
     Dates: start: 20241030, end: 20241103
  34. METHYLPREDNISOLONE [Concomitant]
     Active Substance: METHYLPREDNISOLONE
     Route: 042
     Dates: start: 20240919, end: 20240923
  35. METHYLPREDNISOLONE [Concomitant]
     Active Substance: METHYLPREDNISOLONE
     Route: 042
     Dates: start: 20241030, end: 20241108
  36. METHYLPREDNISOLONE [Concomitant]
     Active Substance: METHYLPREDNISOLONE
     Route: 042
     Dates: start: 20240919, end: 20240923
  37. METHYLPREDNISOLONE [Concomitant]
     Active Substance: METHYLPREDNISOLONE
     Route: 042
     Dates: start: 20241108, end: 20241119
  38. METHYLPREDNISOLONE [Concomitant]
     Active Substance: METHYLPREDNISOLONE
     Route: 042
     Dates: start: 20241119, end: 20241122
  39. METHYLPREDNISOLONE [Concomitant]
     Active Substance: METHYLPREDNISOLONE
     Route: 042
     Dates: start: 20241107, end: 20241107
  40. METHYLPREDNISOLONE [Concomitant]
     Active Substance: METHYLPREDNISOLONE
     Route: 042
     Dates: start: 20241030, end: 20241030
  41. Hydroprednisone inj [Concomitant]
     Route: 042
     Dates: start: 20240629, end: 20240704
  42. Hydroprednisone inj [Concomitant]
     Route: 042
     Dates: start: 20240624, end: 20240629
  43. Esomeprazole magnesium enteric capsule [Concomitant]
     Route: 048
     Dates: start: 20240809, end: 20240813
  44. Esomeprazole magnesium enteric capsule [Concomitant]
     Route: 048
     Dates: start: 20240830, end: 20240830
  45. Esomeprazole magnesium enteric capsule [Concomitant]
     Route: 048
     Dates: start: 20240624, end: 20240704
  46. Esomeprazole magnesium enteric capsule [Concomitant]
     Route: 048
     Dates: start: 20241012, end: 20241015
  47. Esomeprazole magnesium enteric capsule [Concomitant]
     Route: 048
     Dates: start: 20241119, end: 20241122
  48. CLOPIDOGREL BISULFATE [Concomitant]
     Active Substance: CLOPIDOGREL BISULFATE
     Route: 048
     Dates: start: 20240624, end: 20240704
  49. CLOPIDOGREL BISULFATE [Concomitant]
     Active Substance: CLOPIDOGREL BISULFATE
     Route: 048
     Dates: start: 20241107, end: 20241122
  50. Ondansetron hydrochloride inj [Concomitant]
     Route: 042
     Dates: start: 20240901, end: 20240902
  51. Ondansetron hydrochloride inj [Concomitant]
     Route: 042
     Dates: start: 20240902, end: 20240902
  52. Ondansetron hydrochloride inj [Concomitant]
     Route: 042
     Dates: start: 20240629, end: 20240701
  53. Ondansetron hydrochloride inj [Concomitant]
     Route: 042
     Dates: start: 20241011, end: 20241013
  54. Dolasetron mesylate inj [Concomitant]
     Route: 042
     Dates: start: 20240809, end: 20240811
  55. Dolasetron mesylate inj [Concomitant]
     Route: 042
     Dates: start: 20240701, end: 20240702
  56. Clostridium butyricum Capsule Live [Concomitant]
     Indication: Adverse event
     Route: 048
     Dates: start: 20240913, end: 20240923
  57. DIPHENHYDRAMINE HYDROCHLORIDE [Concomitant]
     Active Substance: DIPHENHYDRAMINE HYDROCHLORIDE
     Route: 030
     Dates: start: 20240831, end: 20240831
  58. DIPHENHYDRAMINE HYDROCHLORIDE [Concomitant]
     Active Substance: DIPHENHYDRAMINE HYDROCHLORIDE
     Route: 030
     Dates: start: 20240808, end: 20240808
  59. DIPHENHYDRAMINE HYDROCHLORIDE [Concomitant]
     Active Substance: DIPHENHYDRAMINE HYDROCHLORIDE
     Route: 030
     Dates: start: 20240830, end: 20240830
  60. DIPHENHYDRAMINE HYDROCHLORIDE [Concomitant]
     Active Substance: DIPHENHYDRAMINE HYDROCHLORIDE
     Route: 030
     Dates: start: 20241010, end: 20241010
  61. DIPHENHYDRAMINE HYDROCHLORIDE [Concomitant]
     Active Substance: DIPHENHYDRAMINE HYDROCHLORIDE
     Route: 030
     Dates: start: 20240628, end: 20240628
  62. Piperacillin tazobactam sodium for inj [Concomitant]
     Indication: Adverse event
     Route: 042
     Dates: start: 20241106
  63. POTASSIUM CHLORIDE [Concomitant]
     Active Substance: POTASSIUM CHLORIDE
     Route: 042
     Dates: start: 20240831, end: 20240831
  64. POTASSIUM CHLORIDE [Concomitant]
     Active Substance: POTASSIUM CHLORIDE
     Route: 042
     Dates: start: 20240830, end: 20240830
  65. METHYLPREDNISOLONE SODIUM SUCCINATE [Concomitant]
     Active Substance: METHYLPREDNISOLONE SODIUM SUCCINATE
     Indication: Adverse event
     Route: 042
     Dates: start: 20240915, end: 20240919
  66. METHYLPREDNISOLONE SODIUM SUCCINATE [Concomitant]
     Active Substance: METHYLPREDNISOLONE SODIUM SUCCINATE
     Indication: Adverse event
     Route: 042
     Dates: start: 20240919, end: 20240923
  67. METHYLPREDNISOLONE SODIUM SUCCINATE [Concomitant]
     Active Substance: METHYLPREDNISOLONE SODIUM SUCCINATE
     Indication: Adverse event
     Route: 042
     Dates: start: 20241030, end: 20241108
  68. METHYLPREDNISOLONE SODIUM SUCCINATE [Concomitant]
     Active Substance: METHYLPREDNISOLONE SODIUM SUCCINATE
     Indication: Adverse event
     Route: 042
     Dates: start: 20241108, end: 20241119
  69. METHYLPREDNISOLONE SODIUM SUCCINATE [Concomitant]
     Active Substance: METHYLPREDNISOLONE SODIUM SUCCINATE
     Indication: Adverse event
     Route: 042
     Dates: start: 20241119, end: 20241122
  70. METHYLPREDNISOLONE SODIUM SUCCINATE [Concomitant]
     Active Substance: METHYLPREDNISOLONE SODIUM SUCCINATE
     Indication: Adverse event
     Route: 042
     Dates: start: 20241107, end: 20241107
  71. METHYLPREDNISOLONE SODIUM SUCCINATE [Concomitant]
     Active Substance: METHYLPREDNISOLONE SODIUM SUCCINATE
     Route: 042
     Dates: start: 20241030, end: 20241030
  72. RIVAROXABAN [Concomitant]
     Active Substance: RIVAROXABAN
     Route: 048
     Dates: start: 20240922, end: 20240923
  73. RIVAROXABAN [Concomitant]
     Active Substance: RIVAROXABAN
     Route: 048
     Dates: start: 20241107, end: 20241122
  74. RIVAROXABAN [Concomitant]
     Active Substance: RIVAROXABAN
     Route: 048
     Dates: start: 20240624, end: 20240704
  75. VITAMINS [Concomitant]
     Active Substance: VITAMINS
     Route: 042
     Dates: start: 20241011, end: 20241015
  76. FUROSEMIDE [Concomitant]
     Active Substance: FUROSEMIDE
     Route: 042
     Dates: start: 20241031, end: 20241104
  77. OMEPRAZOLE SODIUM [Concomitant]
     Active Substance: OMEPRAZOLE SODIUM
     Route: 042
     Dates: start: 20241030, end: 20241106
  78. Esazolam [Concomitant]
     Dosage: EVERY NIGHT
     Route: 048
     Dates: start: 20241107, end: 20241121
  79. SULFAMETHOXAZOLE [Concomitant]
     Active Substance: SULFAMETHOXAZOLE
     Route: 048
     Dates: start: 20241111, end: 20241122
  80. HEPARIN SODIUM [Concomitant]
     Active Substance: HEPARIN SODIUM
     Indication: Adverse event
     Route: 058
     Dates: start: 20241114, end: 20241121

REACTIONS (3)
  - Pneumonia [Recovered/Resolved]
  - Gastroenteritis [Recovered/Resolved]
  - Nausea [Recovered/Resolved]
